FAERS Safety Report 7701525-3 (Version None)
Quarter: 2011Q3

REPORT INFORMATION
  Report Type: 
  Country: None (occurrence: None)
  Receive Date: 20110822
  Receipt Date: 20100730
  Transmission Date: 20111222
  Serious: No
  Sender: FDA-Public Use
  Company Number: US-BAYER-201032199NA

PATIENT
  Age: 55 Year
  Sex: Female

DRUGS (1)
  1. ANGELIQ [Suspect]
     Indication: CONTRACEPTION

REACTIONS (3)
  - BREAST PAIN [None]
  - COELIAC DISEASE [None]
  - ABDOMINAL PAIN UPPER [None]
